FAERS Safety Report 15704949 (Version 2)
Quarter: 2018Q4

REPORT INFORMATION
  Report Type: Spontaneous
  Country: US (occurrence: US)
  Receive Date: 20181210
  Receipt Date: 20181227
  Transmission Date: 20190205
  Serious: No
  Sender: FDA-Public Use
  Company Number: US-SA-2018SA332787

PATIENT
  Age: 65 Year
  Sex: Female

DRUGS (1)
  1. APIDRA [Suspect]
     Active Substance: INSULIN GLULISINE
     Dosage: 7 IU AT BREAKFAST, 11 IU AT LUNCH,  3 TO 4 TIMES A DAY
     Route: 065

REACTIONS (4)
  - Product use complaint [Unknown]
  - Drug ineffective [Unknown]
  - Blood glucose abnormal [Unknown]
  - Product quality issue [Unknown]
